FAERS Safety Report 25475327 (Version 3)
Quarter: 2025Q3

REPORT INFORMATION
  Report Type: Spontaneous
  Country: EU (occurrence: EU)
  Receive Date: 20250624
  Receipt Date: 20250707
  Transmission Date: 20251021
  Serious: Yes (Hospitalization, Other)
  Sender: MYLAN
  Company Number: EU-ZENTIVA-2025-ZT-039394

PATIENT
  Age: 73 Year
  Sex: Male

DRUGS (4)
  1. METFORMIN [Suspect]
     Active Substance: METFORMIN HYDROCHLORIDE
     Indication: Product used for unknown indication
  2. METFORMIN [Suspect]
     Active Substance: METFORMIN HYDROCHLORIDE
     Route: 065
  3. METFORMIN [Suspect]
     Active Substance: METFORMIN HYDROCHLORIDE
     Route: 065
  4. METFORMIN [Suspect]
     Active Substance: METFORMIN HYDROCHLORIDE

REACTIONS (10)
  - Haemolytic anaemia [Recovering/Resolving]
  - Respiratory failure [Recovered/Resolved]
  - Thrombocytopenia [Recovered/Resolved]
  - Pancreatitis chronic [Recovering/Resolving]
  - Asthenia [Recovered/Resolved]
  - Dyspnoea [Recovered/Resolved]
  - Anaemia macrocytic [Recovered/Resolved]
  - Hyperhomocysteinaemia [Recovered/Resolved]
  - Chronic gastritis [Recovering/Resolving]
  - Vitamin B12 deficiency [Recovered/Resolved]
